FAERS Safety Report 13163395 (Version 1)
Quarter: 2017Q1

REPORT INFORMATION
  Report Type: Spontaneous
  Country: US (occurrence: US)
  Receive Date: 20170125
  Receipt Date: 20170125
  Transmission Date: 20170428
  Serious: Yes (Other)
  Sender: FDA-Public Use
  Company Number: None

PATIENT
  Age: 60 Year
  Sex: Male
  Weight: 83.25 kg

DRUGS (20)
  1. XANAX [Concomitant]
     Active Substance: ALPRAZOLAM
  2. MULTIVITAMIN (THERAGRAN) [Concomitant]
  3. SUMATRIPTAN (IMITREX) [Concomitant]
  4. ALFUZOSIN 10MG [Suspect]
     Active Substance: ALFUZOSIN
     Indication: BENIGN PROSTATIC HYPERPLASIA
     Dosage: ?          QUANTITY:1 TABLET(S);?
     Route: 048
     Dates: start: 20170121, end: 20170125
  5. DUTASTERIDE. [Suspect]
     Active Substance: DUTASTERIDE
     Indication: BENIGN PROSTATIC HYPERPLASIA
     Dosage: ?          QUANTITY:1 CAPSULE(S);?
     Route: 048
     Dates: start: 20170121, end: 20170125
  6. DUTASTERIDE. [Suspect]
     Active Substance: DUTASTERIDE
     Indication: PROSTATOMEGALY
     Dosage: ?          QUANTITY:1 CAPSULE(S);?
     Route: 048
     Dates: start: 20170121, end: 20170125
  7. DILTIAZEM ER (TIAZAC) [Concomitant]
  8. SYNTHROID [Concomitant]
     Active Substance: LEVOTHYROXINE SODIUM
  9. REMERON [Concomitant]
     Active Substance: MIRTAZAPINE
  10. MULTIVITAMIN [Concomitant]
     Active Substance: VITAMINS
  11. LIDOCAINE (XYLOCAINE) [Concomitant]
  12. ALFUZOSIN 10MG [Suspect]
     Active Substance: ALFUZOSIN
     Indication: PROSTATOMEGALY
     Dosage: ?          QUANTITY:1 TABLET(S);?
     Route: 048
     Dates: start: 20170121, end: 20170125
  13. LIORESAL [Concomitant]
     Active Substance: BACLOFEN
  14. HYDROCODONE-ACETAMINOPHEN (NORCO) [Concomitant]
  15. TRAMADOL (ULTRAM) [Concomitant]
  16. COUMADIN [Concomitant]
     Active Substance: WARFARIN SODIUM
  17. AMIODARONE (CORDARONE) [Concomitant]
  18. CYMBALTA [Concomitant]
     Active Substance: DULOXETINE HYDROCHLORIDE
  19. PRAVACHOL [Concomitant]
     Active Substance: PRAVASTATIN SODIUM
  20. CIALIS [Concomitant]
     Active Substance: TADALAFIL

REACTIONS (4)
  - Loss of consciousness [None]
  - Tremor [None]
  - Headache [None]
  - Dizziness [None]

NARRATIVE: CASE EVENT DATE: 20170125
